FAERS Safety Report 6061845-8 (Version None)
Quarter: 2009Q1

REPORT INFORMATION
  Report Type: 
  Country: None (occurrence: None)
  Receive Date: 20090202
  Receipt Date: 20090123
  Transmission Date: 20090719
  Serious: Yes (Hospitalization)
  Sender: FDA-Public Use
  Company Number: CA-AMGEN-QUU330208

PATIENT
  Sex: Female

DRUGS (13)
  1. NEULASTA [Suspect]
     Indication: CHEMOTHERAPY
     Route: 058
     Dates: start: 20090110
  2. PREDNISONE [Concomitant]
  3. SOLU-MEDROL [Concomitant]
  4. PAXIL [Concomitant]
  5. WARFARIN SODIUM [Concomitant]
  6. HYDROCHLOROTHIAZIDE [Concomitant]
  7. BISOPROLOL [Concomitant]
  8. NORVASC [Concomitant]
  9. COVERSYL [Concomitant]
  10. METFORMIN [Concomitant]
  11. FERROUS GLUCONATE [Concomitant]
  12. POTASSIUM CHLORIDE [Concomitant]
  13. DOCETAXEL [Concomitant]

REACTIONS (4)
  - ATRIAL FIBRILLATION [None]
  - NEUTROPHIL COUNT INCREASED [None]
  - SEPSIS [None]
  - WHITE BLOOD CELL COUNT INCREASED [None]
